FAERS Safety Report 9546542 (Version 2)
Quarter: 2013Q3

REPORT INFORMATION
  Report Type: Report from Study
  Country: CA (occurrence: CA)
  Receive Date: 20130923
  Receipt Date: 20130923
  Transmission Date: 20140515
  Serious: Yes (Other)
  Sender: FDA-Public Use
  Company Number: CA-ROCHE-1214193

PATIENT
  Age: 57 Year
  Sex: Female

DRUGS (6)
  1. PEGASYS [Suspect]
     Indication: CHRONIC HEPATITIS C
     Dosage: 0.5 ML PRE FILLED SYRINGE
     Route: 058
     Dates: start: 20111122, end: 20120307
  2. PEGASYS [Suspect]
     Dosage: 0.5 ML PRE FILLED SYRINGE
     Route: 058
     Dates: start: 20121122, end: 20130910
  3. PEGASYS [Suspect]
     Route: 058
     Dates: start: 20121120, end: 20130527
  4. COPEGUS [Suspect]
     Indication: CHRONIC HEPATITIS C
     Dosage: 35 TABLETS A WEEK
     Route: 048
     Dates: start: 20111122, end: 20120307
  5. COPEGUS [Suspect]
     Dosage: 35 TABLETS A WEEK
     Route: 048
     Dates: start: 20121120, end: 20130910
  6. INCIVEK [Suspect]
     Indication: HEPATITIS C
     Route: 048
     Dates: start: 20121120, end: 20130910

REACTIONS (6)
  - Asthma [Unknown]
  - Haemoglobin decreased [Unknown]
  - Neutropenia [Unknown]
  - Urinary tract infection [Unknown]
  - Hepatitis [Unknown]
  - White blood cell count decreased [Unknown]
